FAERS Safety Report 6956834-2 (Version None)
Quarter: 2010Q3

REPORT INFORMATION
  Report Type: 
  Country: None (occurrence: None)
  Receive Date: 20100826
  Receipt Date: 20100810
  Transmission Date: 20110219
  Serious: Yes (Hospitalization)
  Sender: FDA-Public Use
  Company Number: THQ2010A02255

PATIENT
  Age: 35 Year
  Sex: Male

DRUGS (11)
  1. LANSOPRAZOLE [Suspect]
     Dosage: 60 MG (30 MG, 2 IN 1 D)
  2. ALCOHOL (ETHANOL) [Suspect]
  3. COCAINE (COCAINE) [Suspect]
  4. DICLOFENAC [Suspect]
     Dosage: 150 MG (50 MG, 3 IN 1 D)
  5. ETHYLAMPHETAMINE [Suspect]
  6. METHADONE HCL [Suspect]
     Dosage: 80 MG (80 MG, 1 IN 1 D)
  7. RISPERDAL CONSTA [Suspect]
     Indication: SCHIZOPHRENIA
     Dosage: 50 MG (50 MG, 1 IN 2 WK) INTRAMUSCULAR
     Route: 030
     Dates: end: 20100617
  8. RISPERIDONE [Suspect]
     Dosage: 2 MG (2 MG, 1 IN 1 D) PER ORAL
     Route: 048
  9. TETRABENAZINE [Suspect]
     Dosage: 12.5 MG (12.5 MG, 1 IN 1 D)
  10. VALDOXAN (ANTIDEPRESSANTS) [Suspect]
     Dosage: 25 MG (25 MG, 1 IN 1 D)
  11. ZOPICLONE [Suspect]
     Dosage: 7.5 MG (7.5 MG, 1 IN 1 D)

REACTIONS (2)
  - ELECTROCARDIOGRAM ABNORMAL [None]
  - MULTIPLE DRUG OVERDOSE INTENTIONAL [None]
